FAERS Safety Report 10203050 (Version 1)
Quarter: 2014Q2

REPORT INFORMATION
  Report Type: Spontaneous
  Country: DE (occurrence: DE)
  Receive Date: 20140529
  Receipt Date: 20140529
  Transmission Date: 20141212
  Serious: Yes (Life-Threatening)
  Sender: FDA-Public Use
  Company Number: DE-MYLANLABS-2014S1011318

PATIENT
  Age: 52 Year
  Sex: Male
  Weight: 87 kg

DRUGS (6)
  1. AMITRIPTYLIN [Suspect]
     Indication: GASTROOESOPHAGEAL REFLUX DISEASE
     Route: 048
     Dates: start: 20131011, end: 20140120
  2. VENLAFAXIN [Suspect]
     Indication: DEPRESSION
     Route: 048
     Dates: start: 20131009, end: 20140120
  3. KATADOLON S [Suspect]
     Indication: RADICULOPATHY
     Route: 048
     Dates: start: 20131011, end: 20140120
  4. PANTOZOL [Suspect]
     Indication: DEPRESSION
     Route: 048
     Dates: start: 20131009, end: 20140120
  5. QUETIAPIN [Concomitant]
     Indication: DEPRESSION
     Dosage: RETARD
     Route: 048
     Dates: start: 20131011, end: 20140121
  6. NEURO-AS [Concomitant]
     Route: 048

REACTIONS (4)
  - Hepatic enzyme increased [Recovered/Resolved]
  - General physical health deterioration [Recovered/Resolved]
  - Abdominal discomfort [Recovered/Resolved]
  - Diarrhoea [Recovered/Resolved]
